FAERS Safety Report 7395414-4 (Version None)
Quarter: 2011Q2

REPORT INFORMATION
  Report Type: 
  Country: None (occurrence: None)
  Receive Date: 20110405
  Receipt Date: 20101007
  Transmission Date: 20111010
  Serious: Yes (Hospitalization, Other)
  Sender: FDA-Public Use
  Company Number: US-BAYER-201018272NA

PATIENT
  Sex: Female
  Weight: 58.957 kg

DRUGS (11)
  1. OCELLA [Suspect]
     Indication: CONTRACEPTION
     Dosage: UNK UNK, QD
     Dates: start: 20080901, end: 20090601
  2. ZITHROMAX [Concomitant]
     Indication: VIRAL INFECTION
     Dosage: UNK UNK, PRN
  3. ADDERALL 10 [Concomitant]
     Indication: PRODUCT USED FOR UNKNOWN INDICATION
  4. UNCODEABLE ^UNCLASSIFIABLE^ [Concomitant]
     Indication: GASTRITIS
  5. YASMIN [Suspect]
     Indication: CONTRACEPTION
     Dosage: UNK UNK, QD
     Dates: start: 20050301, end: 20080401
  6. UNCODEABLE ^UNCLASSIFIABLE^ [Concomitant]
     Indication: DEPRESSION
     Dosage: 20 MG, BID
     Dates: start: 20080312, end: 20080601
  7. PROZAC [Concomitant]
     Indication: PRODUCT USED FOR UNKNOWN INDICATION
  8. NSAID'S [Concomitant]
     Indication: PAIN
     Dosage: UNK UNK, PRN
  9. LAMICTAL [Concomitant]
     Indication: DEPRESSION
     Dosage: 150 MG, QD
     Dates: start: 20060101
  10. UNCODEABLE ^UNCLASSIFIABLE^ [Concomitant]
     Indication: ANXIETY
     Dosage: 0.5 MG, QD
     Dates: start: 20060701
  11. TORADOL [Concomitant]
     Indication: NECK PAIN

REACTIONS (7)
  - BILIARY DYSKINESIA [None]
  - VOMITING [None]
  - PROCEDURAL PAIN [None]
  - ABDOMINAL PAIN UPPER [None]
  - NAUSEA [None]
  - GALLBLADDER DISORDER [None]
  - BACK PAIN [None]
